FAERS Safety Report 4616895-2 (Version None)
Quarter: 2005Q1

REPORT INFORMATION
  Report Type: 
  Country: None (occurrence: None)
  Receive Date: 20050318
  Receipt Date: 20050307
  Transmission Date: 20050727
  Serious: Yes (Death, Hospitalization)
  Sender: FDA-Public Use
  Company Number: HQWYE500123FEB05

PATIENT
  Age: 81 Year
  Sex: Male

DRUGS (5)
  1. MINOMYCIN (MINOCYCLINE, INJECTION) [Suspect]
     Indication: PNEUMONIA
     Dosage: SEE IMAGE
     Route: 041
     Dates: start: 20050207, end: 20050207
  2. MINOMYCIN (MINOCYCLINE, INJECTION) [Suspect]
     Indication: PNEUMONIA
     Dosage: SEE IMAGE
     Route: 041
     Dates: start: 20050208, end: 20050208
  3. MINOMYCIN (MINOCYCLINE, INJECTION) [Suspect]
     Indication: PNEUMONIA
     Dosage: SEE IMAGE
     Route: 041
     Dates: start: 20050209, end: 20050209
  4. PIPERACILLIN SODIUM [Suspect]
     Indication: PNEUMONIA
     Dosage: 2 G DAILY
     Route: 041
     Dates: start: 20050210, end: 20050212
  5. VENOGLOBULIN-I (IMMUNOGLOBULIN HUMAN NORMAL) [Concomitant]

REACTIONS (6)
  - ALANINE AMINOTRANSFERASE INCREASED [None]
  - ASPARTATE AMINOTRANSFERASE INCREASED [None]
  - BLOOD BILIRUBIN INCREASED [None]
  - GAMMA-GLUTAMYLTRANSFERASE INCREASED [None]
  - HEPATIC FUNCTION ABNORMAL [None]
  - RESPIRATORY FAILURE [None]
